FAERS Safety Report 9382094 (Version 1)
Quarter: 2013Q3

REPORT INFORMATION
  Report Type: Spontaneous
  Country: BR (occurrence: BR)
  Receive Date: 20130703
  Receipt Date: 20130703
  Transmission Date: 20140515
  Serious: Yes (Death, Other)
  Sender: FDA-Public Use
  Company Number: BR-ELI_LILLY_AND_COMPANY-BR201306009395

PATIENT
  Age: 84 Year
  Sex: Male

DRUGS (1)
  1. EFFIENT [Suspect]
     Indication: ANTIPLATELET THERAPY
     Dosage: 5 MG, QD
     Route: 048
     Dates: start: 20130507

REACTIONS (1)
  - Respiratory failure [Fatal]
